FAERS Safety Report 9491256 (Version 1)
Quarter: 2013Q1

REPORT INFORMATION
  Report Type: Not Available
  Country: US (occurrence: US)
  Receive Date: 20120619
  Receipt Date: 20120619
  Transmission Date: 20140127
  Serious: Yes (Other)
  Sender: FDA-Public Use
  Company Number: US-LUNDBECK-DKLU1078196

PATIENT
  Age: 5 None
  Sex: Female

DRUGS (6)
  1. SABRIL (FOR ORAL SOLUTION) [Suspect]
     Indication: INFANTILE SPASMS
     Route: 048
     Dates: start: 20120228, end: 20120404
  2. SABRIL (FOR ORAL SOLUTION) [Suspect]
     Route: 048
     Dates: start: 20120228, end: 20120404
  3. LAMICTAL [Concomitant]
     Indication: CONVULSION
     Route: 048
  4. LAMICTAL [Concomitant]
     Route: 048
  5. KEPPRA [Concomitant]
     Indication: CONVULSION
     Route: 048
  6. ZONEGRAN [Concomitant]
     Indication: CONVULSION
     Route: 048

REACTIONS (1)
  - Convulsion [Recovered/Resolved]
